FAERS Safety Report 5237536-X (Version None)
Quarter: 2007Q1

REPORT INFORMATION
  Report Type: 
  Country: None (occurrence: None)
  Receive Date: 20070213
  Receipt Date: 20070201
  Transmission Date: 20070707
  Serious: Yes (Disabling)
  Sender: FDA-Public Use
  Company Number: DE-PFIZER INC-2006152832

PATIENT
  Sex: Female
  Weight: 67 kg

DRUGS (2)
  1. ZITHROMAX [Suspect]
     Indication: BRONCHITIS
     Dosage: DAILY DOSE:500MG
     Route: 048
     Dates: start: 20061031, end: 20061101
  2. ZITHROMAX [Suspect]
     Indication: PYREXIA

REACTIONS (2)
  - AGEUSIA [None]
  - ANOSMIA [None]
